FAERS Safety Report 6715429-6 (Version None)
Quarter: 2010Q2

REPORT INFORMATION
  Report Type: 
  Country: None (occurrence: None)
  Receive Date: 20100507
  Receipt Date: 20100426
  Transmission Date: 20101027
  Serious: Yes (Hospitalization)
  Sender: FDA-Public Use
  Company Number: US-JNJFOC-20100406995

PATIENT
  Sex: Female
  Weight: 19.5 kg

DRUGS (5)
  1. REMICADE [Suspect]
     Indication: INFLAMMATORY BOWEL DISEASE
     Route: 042
  2. MERCAPTOPURINE [Concomitant]
  3. VALCYTE [Concomitant]
  4. GANCICLOVIR [Concomitant]
     Route: 042
  5. PREDNISONE [Concomitant]

REACTIONS (2)
  - CYTOMEGALOVIRUS INFECTION [None]
  - INFLAMMATORY BOWEL DISEASE [None]
